FAERS Safety Report 14287294 (Version 2)
Quarter: 2018Q1

REPORT INFORMATION
  Report Type: Spontaneous
  Country: IT (occurrence: IT)
  Receive Date: 20171214
  Receipt Date: 20180308
  Transmission Date: 20180509
  Serious: Yes (Other)
  Sender: FDA-Public Use
  Company Number: IT-PFIZER INC-2017532235

PATIENT
  Age: 35 Year

DRUGS (1)
  1. ZITROMAX [Suspect]
     Active Substance: AZITHROMYCIN
     Indication: CHOLECYSTECTOMY
     Dosage: 500 MG, UNK
     Route: 042
     Dates: start: 20170210, end: 20170210

REACTIONS (3)
  - Abdominal pain upper [Unknown]
  - Suffocation feeling [Unknown]
  - Hot flush [Unknown]

NARRATIVE: CASE EVENT DATE: 20170210
